FAERS Safety Report 7499439-X (Version None)
Quarter: 2011Q2

REPORT INFORMATION
  Report Type: 
  Country: None (occurrence: None)
  Receive Date: 20110524
  Receipt Date: 20110510
  Transmission Date: 20111010
  Serious: Yes (Hospitalization)
  Sender: FDA-Public Use
  Company Number: PHHY2011FR38944

PATIENT
  Age: 54 Year
  Sex: Male

DRUGS (1)
  1. VOLTAREN [Suspect]
     Indication: BACK PAIN
     Dosage: 150 MG, QD
     Route: 030
     Dates: start: 20110329, end: 20110402

REACTIONS (12)
  - GENERAL PHYSICAL HEALTH DETERIORATION [None]
  - PAIN [None]
  - PYREXIA [None]
  - C-REACTIVE PROTEIN INCREASED [None]
  - LYMPHADENOPATHY [None]
  - CHILLS [None]
  - INFLAMMATION [None]
  - ASTHENIA [None]
  - MOBILITY DECREASED [None]
  - LIMB DISCOMFORT [None]
  - HYPERHIDROSIS [None]
  - ERYTHEMA [None]
